FAERS Safety Report 6370130-6 (Version None)
Quarter: 2009Q3

REPORT INFORMATION
  Report Type: 
  Country: None (occurrence: None)
  Receive Date: 20090923
  Receipt Date: 20071205
  Transmission Date: 20100115
  Serious: No
  Sender: FDA-Public Use
  Company Number: US-ASTRAZENECA-2006UW21277

PATIENT
  Age: 42 Year
  Sex: Female
  Weight: 88.9 kg

DRUGS (22)
  1. SEROQUEL [Suspect]
     Indication: DEPRESSION
     Dosage: 100 MG - 200 MG
     Route: 048
     Dates: start: 20020101, end: 20030101
  2. CYCLOBENZAPRINE [Concomitant]
  3. ORPHENADRINE CITRATE [Concomitant]
  4. LUNESTA [Concomitant]
     Dosage: 1-3 MG
  5. OXYCONTIN [Concomitant]
     Dosage: 5-80 MG
  6. KLONOPIN [Concomitant]
  7. MIRTAZAPINE [Concomitant]
  8. NEXIUM [Concomitant]
  9. METFORMIN HCL [Concomitant]
  10. AUGMENTIN [Concomitant]
  11. IBUPROFEN [Concomitant]
  12. HYDROXYZINE [Concomitant]
  13. COLACE [Concomitant]
  14. LISINOPRIL [Concomitant]
  15. CYMBALTA [Concomitant]
  16. REQUIP [Concomitant]
     Indication: RESTLESS LEGS SYNDROME
  17. ROZEREM [Concomitant]
     Indication: INSOMNIA
  18. LIPITOR [Concomitant]
  19. LYRICA [Concomitant]
     Indication: FIBROMYALGIA
  20. ATIVAN [Concomitant]
     Indication: POST-TRAUMATIC STRESS DISORDER
  21. AMBIEN [Concomitant]
  22. ROBAXIN [Concomitant]

REACTIONS (20)
  - ANXIETY [None]
  - BACK PAIN [None]
  - BLOOD CHOLESTEROL INCREASED [None]
  - BLOOD TRIGLYCERIDES INCREASED [None]
  - BREAST PAIN [None]
  - DEPRESSION [None]
  - DIABETES MELLITUS [None]
  - DYSLIPIDAEMIA [None]
  - FIBROMYALGIA [None]
  - HEPATIC STEATOSIS [None]
  - HEPATOMEGALY [None]
  - HYPERGLYCAEMIA [None]
  - HYPERLIPIDAEMIA [None]
  - HYPERTENSION [None]
  - INSOMNIA [None]
  - PAIN [None]
  - PANIC ATTACK [None]
  - POLYURIA [None]
  - RESTLESS LEGS SYNDROME [None]
  - URINARY TRACT INFECTION [None]
